FAERS Safety Report 6970396-5 (Version None)
Quarter: 2010Q3

REPORT INFORMATION
  Report Type: 
  Country: None (occurrence: None)
  Receive Date: 20100908
  Receipt Date: 20100902
  Transmission Date: 20110219
  Serious: Yes (Other)
  Sender: FDA-Public Use
  Company Number: JP-PFIZER INC-2010110558

PATIENT
  Sex: Female

DRUGS (1)
  1. ATARAX [Suspect]
     Route: 042

REACTIONS (3)
  - INJECTION SITE NECROSIS [None]
  - INJECTION SITE SWELLING [None]
  - STILLBIRTH [None]
